FAERS Safety Report 19167465 (Version 1)
Quarter: 2021Q2

REPORT INFORMATION
  Report Type: Spontaneous
  Country: FR (occurrence: FR)
  Receive Date: 20210422
  Receipt Date: 20210422
  Transmission Date: 20210717
  Serious: Yes (Hospitalization)
  Sender: FDA-Public Use
  Company Number: FR-JNJFOC-20210438263

PATIENT
  Age: 101 Year
  Sex: Female
  Weight: 44 kg

DRUGS (13)
  1. SALBUTAMOL [Suspect]
     Active Substance: ALBUTEROL
     Indication: ASTHMA
     Dosage: 1?0?1 (2.5M/2.5ML)
     Route: 055
     Dates: start: 20181102, end: 20181129
  2. SODIUM CHLORIDE. [Suspect]
     Active Substance: SODIUM CHLORIDE
     Indication: HYPONATRAEMIA
     Dosage: 2?0?2
     Route: 048
     Dates: start: 20181102
  3. KARDEGIC [Suspect]
     Active Substance: ASPIRIN DL-LYSINE
     Indication: THROMBOSIS PROPHYLAXIS
     Dosage: 1?0?0
     Route: 048
     Dates: start: 20181102
  4. OXAZEPAM. [Suspect]
     Active Substance: OXAZEPAM
     Indication: ANXIETY
     Dosage: 0?0?1/2 (10 MG)
     Route: 048
     Dates: start: 20181102, end: 20181206
  5. VITAMIN D3 [Suspect]
     Active Substance: CHOLECALCIFEROL
     Indication: HYPOVITAMINOSIS
     Dosage: 1?0?0
     Route: 048
     Dates: start: 20181102
  6. FUROSEMIDE. [Suspect]
     Active Substance: FUROSEMIDE
     Indication: HYPERTENSION
     Dosage: 1/2?0?0 (40MG)
     Route: 048
     Dates: start: 20181102
  7. BUDESONIDE. [Suspect]
     Active Substance: BUDESONIDE
     Indication: ASTHMA
     Dosage: 1?0?1 (1MG/2ML)
     Route: 055
     Dates: start: 20181102, end: 20181129
  8. MACROGOL [Suspect]
     Active Substance: POLYETHYLENE GLYCOLS
     Indication: CONSTIPATION
     Dosage: 2?0?0
     Route: 048
     Dates: start: 20181102
  9. DIGOXINE [Suspect]
     Active Substance: DIGOXIN
     Indication: CARDIAC FAILURE
     Dosage: 1/2?0?0 (0.25MG)
     Route: 048
     Dates: start: 20181102, end: 20181206
  10. REFRESH CELLUVISC [Suspect]
     Active Substance: CARBOXYMETHYLCELLULOSE SODIUM
     Indication: LACRIMATION DECREASED
     Dosage: 1?1?1 DROP IN BOTH EYES
     Route: 047
     Dates: start: 20181102
  11. CALCIUM ACETATE. [Suspect]
     Active Substance: CALCIUM ACETATE
     Indication: HYPOVITAMINOSIS
     Dosage: 1?0?0
     Route: 048
     Dates: start: 20181102
  12. OFLOCET [OFLOXACIN] [Suspect]
     Active Substance: OFLOXACIN
     Indication: RESPIRATORY TRACT INFECTION
     Dosage: 1?0?1
     Route: 048
     Dates: start: 20181122, end: 20181127
  13. BISOPROLOL FUMARATE. [Suspect]
     Active Substance: BISOPROLOL FUMARATE
     Indication: HYPERTENSION
     Dosage: 1?0?0
     Route: 048
     Dates: start: 20181102

REACTIONS (2)
  - Hallucination [Recovering/Resolving]
  - Confusional state [Recovering/Resolving]

NARRATIVE: CASE EVENT DATE: 20181123
